FAERS Safety Report 10207941 (Version 1)
Quarter: 2014Q2

REPORT INFORMATION
  Report Type: Spontaneous
  Country: US (occurrence: US)
  Receive Date: 20140530
  Receipt Date: 20140530
  Transmission Date: 20141212
  Serious: No
  Sender: FDA-Public Use
  Company Number: US-GLAXOSMITHKLINE-A1065672A

PATIENT
  Age: 64 Year
  Sex: Female

DRUGS (2)
  1. VENTOLIN [Suspect]
     Indication: PRODUCT USED FOR UNKNOWN INDICATION
     Dosage: 90MCG UNKNOWN
     Route: 065
     Dates: start: 20130121
  2. ADVAIR [Concomitant]
     Route: 065
     Dates: start: 20100409

REACTIONS (1)
  - Hypersensitivity [Unknown]
